FAERS Safety Report 7230917-4 (Version None)
Quarter: 2011Q1

REPORT INFORMATION
  Report Type: 
  Country: None (occurrence: None)
  Receive Date: 20110118
  Receipt Date: 20110105
  Transmission Date: 20110831
  Serious: Yes (Other)
  Sender: FDA-Public Use
  Company Number: US-ROCHE-733696

PATIENT
  Sex: Female
  Weight: 58.5 kg

DRUGS (4)
  1. ACCUTANE [Suspect]
     Indication: ACNE
     Route: 048
     Dates: start: 20011101, end: 20011114
  2. ACCUTANE [Suspect]
     Route: 048
     Dates: start: 20020307, end: 20020325
  3. ACCUTANE [Suspect]
     Dosage: INCREASED TO 40 MG BID ON WEEK DAYS AND 40 MG QD ON WEEKEND
     Route: 048
     Dates: start: 20020110, end: 20020306
  4. ACCUTANE [Suspect]
     Dosage: INCREASED TO 40 MG BID ON EVEN DAYS ALTERNATING WITH 40 MG QD ON ODD
     Route: 048
     Dates: start: 20011115, end: 20020109

REACTIONS (11)
  - COLITIS ISCHAEMIC [None]
  - DRY SKIN [None]
  - PRURITUS [None]
  - DIVERTICULUM [None]
  - LIP DRY [None]
  - EYE IRRITATION [None]
  - ALOPECIA [None]
  - COLITIS ULCERATIVE [None]
  - ARTHRALGIA [None]
  - INFLAMMATORY BOWEL DISEASE [None]
  - ERYTHEMA [None]
